FAERS Safety Report 5718540-1 (Version None)
Quarter: 2008Q2

REPORT INFORMATION
  Report Type: 
  Country: None (occurrence: None)
  Receive Date: 20080425
  Receipt Date: 20080414
  Transmission Date: 20081010
  Serious: Yes (Other)
  Sender: FDA-Public Use
  Company Number: GB-PFIZER INC-2008018071

PATIENT
  Sex: Female

DRUGS (2)
  1. CHAMPIX [Suspect]
     Indication: SMOKING CESSATION THERAPY
     Route: 048
     Dates: start: 20080115, end: 20080208
  2. ALCOHOL [Concomitant]

REACTIONS (8)
  - AGGRESSION [None]
  - DEPRESSION [None]
  - EMOTIONAL DISORDER [None]
  - MOOD SWINGS [None]
  - PARANOIA [None]
  - PERSONALITY DISORDER [None]
  - SLEEP DISORDER [None]
  - THINKING ABNORMAL [None]
